FAERS Safety Report 8416268-0 (Version None)
Quarter: 2012Q2

REPORT INFORMATION
  Report Type: 
  Country: None (occurrence: None)
  Receive Date: 20120606
  Receipt Date: 20120524
  Transmission Date: 20120825
  Serious: Yes (Hospitalization)
  Sender: FDA-Public Use
  Company Number: IT-ELI_LILLY_AND_COMPANY-IT201205009225

PATIENT
  Sex: Female

DRUGS (3)
  1. ZYPREXA [Suspect]
     Dosage: 1.5 DF, QD
     Route: 048
     Dates: start: 20110921, end: 20120413
  2. DELORAZEPAM [Concomitant]
     Dosage: 10 DROPS, UNKNOWN
     Route: 048
     Dates: start: 20110921, end: 20120413
  3. CITALOPRAM HYDROBROMIDE [Concomitant]
     Dosage: 1.5 DF, UNKNOWN
     Route: 048
     Dates: start: 20110921, end: 20120413

REACTIONS (2)
  - OEDEMA PERIPHERAL [None]
  - VENOUS INSUFFICIENCY [None]
